FAERS Safety Report 11803980 (Version 1)
Quarter: 2015Q4

REPORT INFORMATION
  Report Type: Spontaneous
  Country: US (occurrence: US)
  Receive Date: 20151204
  Receipt Date: 20151204
  Transmission Date: 20160305
  Serious: Yes (Hospitalization)
  Sender: FDA-Public Use
  Company Number: US-ASTRAZENECA-2015SF19289

PATIENT
  Sex: Female
  Weight: 83.9 kg

DRUGS (5)
  1. VITAMIN D3 [Concomitant]
     Active Substance: CHOLECALCIFEROL
  2. METANX [Concomitant]
     Active Substance: LEVOMEFOLATE CALCIUM\METHYLCOBALAMIN\PYRIDOXAL PHOSPHATE ANHYDROUS
  3. BYETTA [Suspect]
     Active Substance: EXENATIDE
     Dosage: 250 MCG/ 1.2 ML, 5 UG, UNKNOWN FREQUENCY
     Route: 058
     Dates: start: 2015
  4. LANTUS [Concomitant]
     Active Substance: INSULIN GLARGINE
  5. KELP [Concomitant]
     Active Substance: KELP

REACTIONS (3)
  - Drug ineffective [Unknown]
  - Anxiety [Unknown]
  - Blood glucose increased [Unknown]
